FAERS Safety Report 8520356 (Version 3)
Quarter: 2012Q4

REPORT INFORMATION
  Report Type: 
  Country: US (occurrence: US)
  Receive Date: 20120418
  Receipt Date: 20121220
  Transmission Date: 20130627
  Serious: Yes (Death, Life-Threatening, Hospitalization, Other)
  Sender: FDA-Public Use
  Company Number: US-GLAXOSMITHKLINE-A0973990A

PATIENT
  Age: 94 Year
  Sex: Female

DRUGS (2)
  1. MELPHALAN [Suspect]
     Indication: MULTIPLE MYELOMA
     Dosage: 2MG See dosage text
     Route: 048
     Dates: start: 20110830
  2. BORTEZOMIB [Suspect]
     Indication: MULTIPLE MYELOMA
     Dosage: 1MG See dosage text
     Route: 058
     Dates: start: 20120105, end: 20120216

REACTIONS (5)
  - Pneumonia [Unknown]
  - Death [Fatal]
  - Renal failure [Unknown]
  - Chronic obstructive pulmonary disease [Unknown]
  - Atrial fibrillation [Unknown]
